FAERS Safety Report 9444223 (Version 1)
Quarter: 2013Q3

REPORT INFORMATION
  Report Type: Report from Study
  Country: BR (occurrence: BR)
  Receive Date: 20130807
  Receipt Date: 20130807
  Transmission Date: 20140515
  Serious: Yes (Other)
  Sender: FDA-Public Use
  Company Number: PHHY2013BR083276

PATIENT
  Age: 27 Year
  Sex: Male

DRUGS (3)
  1. EVEROLIMUS [Suspect]
     Dosage: UNK
  2. METHYLPREDNISOLONE [Concomitant]
     Indication: IMMUNOSUPPRESSION
     Dosage: UNK
  3. AZATHIOPRINE [Concomitant]
     Indication: IMMUNOSUPPRESSION
     Dosage: UNK

REACTIONS (6)
  - Tubulointerstitial nephritis [Unknown]
  - Lower gastrointestinal haemorrhage [Unknown]
  - Hypovolaemic shock [Unknown]
  - Renal impairment [Unknown]
  - Human polyomavirus infection [Unknown]
  - Cytomegalovirus infection [Unknown]
